FAERS Safety Report 21455945 (Version 2)
Quarter: 2022Q4

REPORT INFORMATION
  Report Type: Report from Study
  Country: CA (occurrence: CA)
  Receive Date: 20221014
  Receipt Date: 20221025
  Transmission Date: 20230112
  Serious: Yes (Other)
  Sender: FDA-Public Use
  Company Number: CA-HLS-202201753

PATIENT
  Age: 63 Year
  Sex: Male

DRUGS (1)
  1. CLOZARIL [Suspect]
     Active Substance: CLOZAPINE
     Indication: Product used for unknown indication
     Dosage: UNKNOWN
     Route: 048
     Dates: start: 20130501, end: 20220920

REACTIONS (3)
  - Neutropenia [Unknown]
  - Neutrophilia [Unknown]
  - Leukopenia [Unknown]

NARRATIVE: CASE EVENT DATE: 20220920
